FAERS Safety Report 5899760-2 (Version None)
Quarter: 2008Q3

REPORT INFORMATION
  Report Type: 
  Country: None (occurrence: None)
  Receive Date: 20080926
  Receipt Date: 20080917
  Transmission Date: 20090109
  Serious: Yes (Hospitalization, Other)
  Sender: FDA-Public Use
  Company Number: US-AMGEN-QUU308429

PATIENT
  Sex: Female

DRUGS (3)
  1. ENBREL [Suspect]
     Indication: RHEUMATOID ARTHRITIS
     Route: 058
  2. METHOTREXATE [Concomitant]
  3. HUMIRA [Concomitant]
     Dates: start: 20070101

REACTIONS (8)
  - ANAEMIA [None]
  - FALL [None]
  - FEMUR FRACTURE [None]
  - GASTROINTESTINAL OBSTRUCTION [None]
  - HAEMORRHAGE [None]
  - HEPATIC ENZYME INCREASED [None]
  - IRITIS [None]
  - PYREXIA [None]
